FAERS Safety Report 10584512 (Version 1)
Quarter: 2014Q4

REPORT INFORMATION
  Report Type: Spontaneous
  Country: ES (occurrence: None)
  Receive Date: 20141112
  Receipt Date: 20141112
  Transmission Date: 20150529
  Serious: Yes (Hospitalization, Disabling)
  Sender: FDA-Public Use
  Company Number: ESP-CLT-2010002

PATIENT
  Sex: Male

DRUGS (5)
  1. LEVOCARNITINE. [Concomitant]
     Active Substance: LEVOCARNITINE
  2. ISOLEUCINE [Concomitant]
     Active Substance: ISOLEUCINE
  3. CARNICOR [Concomitant]
  4. CARBAGLU [Suspect]
     Active Substance: CARGLUMIC ACID
     Indication: HYPERAMMONAEMIA
     Dosage: DAYS
     Route: 048
     Dates: start: 20051110, end: 20051110
  5. BIOTIN [Concomitant]
     Active Substance: BIOTIN

REACTIONS (4)
  - Liver disorder [None]
  - Overdose [None]
  - Infection [None]
  - Liver transplant [None]
